FAERS Safety Report 25338720 (Version 1)
Quarter: 2025Q2

REPORT INFORMATION
  Report Type: Spontaneous
  Country: US (occurrence: US)
  Receive Date: 20250520
  Receipt Date: 20250520
  Transmission Date: 20250716
  Serious: No
  Sender: ELI LILLY AND COMPANY
  Company Number: US-ELI_LILLY_AND_COMPANY-US202505010458

PATIENT
  Age: 68 Year
  Sex: Female

DRUGS (1)
  1. FORTEO [Suspect]
     Active Substance: TERIPARATIDE
     Indication: Plasma cell myeloma
     Route: 065
     Dates: start: 202502

REACTIONS (2)
  - Protein total increased [Unknown]
  - Off label use [Unknown]

NARRATIVE: CASE EVENT DATE: 20250201
